FAERS Safety Report 11867133 (Version 1)
Quarter: 2015Q4

REPORT INFORMATION
  Report Type: Spontaneous
  Country: US (occurrence: US)
  Receive Date: 20151224
  Receipt Date: 20151224
  Transmission Date: 20160305
  Serious: No
  Sender: FDA-Public Use
  Company Number: US-ASTRAZENECA-2012SE74364

PATIENT
  Age: 611 Month
  Sex: Male
  Weight: 72.6 kg

DRUGS (11)
  1. ZETIA [Concomitant]
     Active Substance: EZETIMIBE
     Dates: start: 20070808
  2. LIPITOR [Concomitant]
     Active Substance: ATORVASTATIN CALCIUM
     Dates: start: 20070629, end: 20070729
  3. PLAVIX [Concomitant]
     Active Substance: CLOPIDOGREL BISULFATE
     Dates: start: 2004, end: 2008
  4. TRICOR [Concomitant]
     Active Substance: FENOFIBRATE
     Dates: start: 2004, end: 2008
  5. CRESTOR [Suspect]
     Active Substance: ROSUVASTATIN CALCIUM
     Indication: BLOOD CHOLESTEROL INCREASED
     Route: 048
     Dates: start: 2004
  6. PREVACID [Concomitant]
     Active Substance: LANSOPRAZOLE
     Indication: GASTROOESOPHAGEAL REFLUX DISEASE
     Dates: start: 200608, end: 200708
  7. ZOCOR [Concomitant]
     Active Substance: SIMVASTATIN
     Dates: start: 2004, end: 2008
  8. ATENOLOL. [Concomitant]
     Active Substance: ATENOLOL
     Dates: start: 2004, end: 2008
  9. ASPIRIN. [Concomitant]
     Active Substance: ASPIRIN
     Dates: start: 2004, end: 2008
  10. ALTACE [Concomitant]
     Active Substance: RAMIPRIL
     Dates: start: 2004, end: 2008
  11. CRESTOR [Suspect]
     Active Substance: ROSUVASTATIN CALCIUM
     Indication: BLOOD CHOLESTEROL INCREASED
     Route: 048
     Dates: start: 20060511

REACTIONS (2)
  - Type 2 diabetes mellitus [Not Recovered/Not Resolved]
  - Gastrooesophageal reflux disease [Unknown]

NARRATIVE: CASE EVENT DATE: 200608
